FAERS Safety Report 13276939 (Version 1)
Quarter: 2017Q1

REPORT INFORMATION
  Report Type: Spontaneous
  Country: DE (occurrence: DE)
  Receive Date: 20170228
  Receipt Date: 20170228
  Transmission Date: 20170428
  Serious: Yes (Other)
  Sender: FDA-Public Use
  Company Number: DE-TORRENT-00006251

PATIENT
  Age: 45 Year
  Sex: Female

DRUGS (5)
  1. ESCITALOPRAM [Suspect]
     Active Substance: ESCITALOPRAM OXALATE
  2. MIRTAZAPINE. [Suspect]
     Active Substance: MIRTAZAPINE
  3. LORAZEPAM. [Suspect]
     Active Substance: LORAZEPAM
  4. QUETIAPINE. [Suspect]
     Active Substance: QUETIAPINE
  5. ALCOHOL. [Suspect]
     Active Substance: ALCOHOL

REACTIONS (1)
  - Suicidal behaviour [Recovered/Resolved]
